FAERS Safety Report 8334366-7 (Version None)
Quarter: 2012Q2

REPORT INFORMATION
  Report Type: 
  Country: None (occurrence: None)
  Receive Date: 20120503
  Receipt Date: 20120426
  Transmission Date: 20120825
  Serious: Yes (Other)
  Sender: FDA-Public Use
  Company Number: US-ABBOTT-12P-163-0929631-00

PATIENT
  Sex: Female
  Weight: 80.812 kg

DRUGS (1)
  1. HUMIRA [Suspect]
     Indication: PSORIASIS
     Dates: start: 20110405, end: 20111201

REACTIONS (4)
  - HEPATITIS A [None]
  - HEPATIC STEATOSIS [None]
  - HEPATIC ENZYME INCREASED [None]
  - FATIGUE [None]
